FAERS Safety Report 10459497 (Version 1)
Quarter: 2014Q3

REPORT INFORMATION
  Report Type: Spontaneous
  Country: US (occurrence: None)
  Receive Date: 20140916
  Receipt Date: 20140916
  Transmission Date: 20150326
  Serious: No
  Sender: FDA-Public Use
  Company Number: None

PATIENT
  Age: 75 Year
  Sex: Male
  Weight: 68.1 kg

DRUGS (2)
  1. MORPHINE [Suspect]
     Active Substance: MORPHINE
     Indication: HALLUCINATION
     Route: 048
     Dates: start: 20140424, end: 20140501
  2. MORPHINE [Suspect]
     Active Substance: MORPHINE
     Indication: CONFUSIONAL STATE
     Route: 048
     Dates: start: 20140424, end: 20140501

REACTIONS (2)
  - Delirium [None]
  - Blood urea increased [None]

NARRATIVE: CASE EVENT DATE: 20140514
